FAERS Safety Report 9384932 (Version 1)
Quarter: 2013Q3

REPORT INFORMATION
  Report Type: Spontaneous
  Country: US (occurrence: US)
  Receive Date: 20130705
  Receipt Date: 20130705
  Transmission Date: 20140515
  Serious: No
  Sender: FDA-Public Use
  Company Number: US-GLAXOSMITHKLINE-A0973630A

PATIENT
  Age: 55 Year
  Sex: Female
  Weight: 97.61 kg

DRUGS (5)
  1. BENLYSTA [Suspect]
     Indication: SYSTEMIC LUPUS ERYTHEMATOSUS
     Dosage: 120MG CYCLIC
     Route: 042
     Dates: start: 20120203
  2. PLAQUENIL [Concomitant]
  3. CELLCEPT [Concomitant]
  4. PREDNISONE [Concomitant]
     Dosage: 5MG PER DAY
  5. BONIVA [Concomitant]

REACTIONS (2)
  - Headache [Recovered/Resolved]
  - Fatigue [Unknown]
